FAERS Safety Report 4971628-5 (Version None)
Quarter: 2006Q2

REPORT INFORMATION
  Report Type: 
  Country: None (occurrence: None)
  Receive Date: 20060413
  Receipt Date: 20060410
  Transmission Date: 20061013
  Serious: Yes (Other)
  Sender: FDA-Public Use
  Company Number: US-JNJFOC-20060305029

PATIENT
  Age: 61 Year
  Sex: Female
  Weight: 80.29 kg

DRUGS (1)
  1. LEVAQUIN [Suspect]

REACTIONS (1)
  - VASCULITIS [None]
